FAERS Safety Report 7273429-4 (Version None)
Quarter: 2011Q1

REPORT INFORMATION
  Report Type: 
  Country: None (occurrence: None)
  Receive Date: 20110203
  Receipt Date: 20100917
  Transmission Date: 20110831
  Serious: No
  Sender: FDA-Public Use
  Company Number: US-ABBOTT-10P-163-0672631-00

PATIENT
  Age: 62 Year
  Sex: Female
  Weight: 59.02 kg

DRUGS (1)
  1. SYNTHROID [Suspect]
     Indication: HYPOTHYROIDISM
     Dates: start: 20100801

REACTIONS (1)
  - DERMATITIS HERPETIFORMIS [None]
